FAERS Safety Report 5195569-6 (Version None)
Quarter: 2007Q1

REPORT INFORMATION
  Report Type: 
  Country: None (occurrence: None)
  Receive Date: 20070102
  Receipt Date: 20061219
  Transmission Date: 20070707
  Serious: Yes (Hospitalization, Other)
  Sender: FDA-Public Use
  Company Number: US-ELI_LILLY_AND_COMPANY-US200612003683

PATIENT
  Age: 55 Year
  Sex: Female

DRUGS (12)
  1. ZYPREXA [Suspect]
     Indication: BIPOLAR DISORDER
     Dosage: 10 MG, EACH EVENING
  2. FERROUS SULFATE TAB [Concomitant]
  3. FOLIC ACID [Concomitant]
  4. MAGNESIUM OXIDE [Concomitant]
     Dosage: 400 MG, UNK
  5. MULTI-VITAMIN [Concomitant]
  6. OMEPRAZOLE [Concomitant]
  7. OXYCODONE HCL [Concomitant]
  8. PAXIL [Concomitant]
  9. SIMETHICONE [Concomitant]
  10. THIAMINE ^SAD^ [Concomitant]
  11. TRILISATE [Concomitant]
  12. ASCORBIC ACID [Concomitant]

REACTIONS (16)
  - AFFECT LABILITY [None]
  - ANAEMIA [None]
  - BALANCE DISORDER [None]
  - CIRRHOSIS ALCOHOLIC [None]
  - CONTUSION [None]
  - CONVULSION [None]
  - DISTURBANCE IN ATTENTION [None]
  - EPISTAXIS [None]
  - FALL [None]
  - FIBROMYALGIA [None]
  - HEPATITIS C [None]
  - KORSAKOFF'S PSYCHOSIS ALCOHOLIC [None]
  - MALNUTRITION [None]
  - MOUTH HAEMORRHAGE [None]
  - TEARFULNESS [None]
  - TOOTH LOSS [None]
